FAERS Safety Report 12583500 (Version 1)
Quarter: 2016Q3

REPORT INFORMATION
  Report Type: Report from Study
  Country: PE (occurrence: PE)
  Receive Date: 20160722
  Receipt Date: 20160722
  Transmission Date: 20161109
  Serious: Yes (Hospitalization, Other)
  Sender: FDA-Public Use
  Company Number: PE-009507513-1606PER013617

PATIENT
  Age: 57 Year
  Sex: Female

DRUGS (2)
  1. NASONEX [Suspect]
     Active Substance: MOMETASONE FUROATE
     Indication: NASAL POLYPS
     Dosage: 1 PUFF EACH NOSTRIL, 2 TIMES PER DAY
     Route: 045
     Dates: start: 201604, end: 20160623
  2. DIPYRONE [Suspect]
     Active Substance: DIPYRONE
     Dosage: UNK

REACTIONS (12)
  - Blood pressure abnormal [Recovering/Resolving]
  - Shock [Unknown]
  - Pleural effusion [Recovering/Resolving]
  - Ear discomfort [Unknown]
  - Tonsillar disorder [Unknown]
  - Nasal discomfort [Unknown]
  - Rhinitis [Unknown]
  - Pneumonia [Recovering/Resolving]
  - Pyrexia [Unknown]
  - Blood glucose abnormal [Recovering/Resolving]
  - Pyrexia [Recovered/Resolved]
  - Inappropriate schedule of drug administration [Unknown]

NARRATIVE: CASE EVENT DATE: 2016
